FAERS Safety Report 7481395-1 (Version None)
Quarter: 2011Q2

REPORT INFORMATION
  Report Type: 
  Country: None (occurrence: None)
  Receive Date: 20110516
  Receipt Date: 20110505
  Transmission Date: 20111010
  Serious: Yes (Other)
  Sender: FDA-Public Use
  Company Number: FR-ELI_LILLY_AND_COMPANY-FR201105002183

PATIENT
  Sex: Male

DRUGS (4)
  1. TAXOL [Concomitant]
     Dosage: UNK
     Dates: start: 20071101, end: 20080501
  2. CISPLATIN [Concomitant]
     Dosage: UNK
     Dates: start: 20070101
  3. ALIMTA [Suspect]
     Indication: BLADDER CANCER
     Dosage: UNK
     Dates: start: 20071101, end: 20080501
  4. GEMZAR [Suspect]
     Indication: BLADDER CANCER
     Dosage: UNK
     Dates: start: 20070101

REACTIONS (2)
  - OFF LABEL USE [None]
  - BURN OESOPHAGEAL [None]
